FAERS Safety Report 17598378 (Version 1)
Quarter: 2020Q1

REPORT INFORMATION
  Report Type: Spontaneous
  Country: US (occurrence: US)
  Receive Date: 20200330
  Receipt Date: 20200330
  Transmission Date: 20200409
  Serious: Yes (Life-Threatening, Hospitalization, Other)
  Sender: FDA-Public Use
  Company Number: US-HIKMA PHARMACEUTICALS USA INC.-US-H14001-20-50933

PATIENT
  Age: 53 Year
  Sex: Female

DRUGS (1)
  1. METHOTREXATE. [Suspect]
     Active Substance: METHOTREXATE
     Indication: STILL^S DISEASE
     Dosage: ()
     Route: 065

REACTIONS (8)
  - Chronic gastritis [Recovering/Resolving]
  - Haemophagocytic lymphohistiocytosis [Recovering/Resolving]
  - Hypotension [Recovering/Resolving]
  - Thrombocytopenia [Recovering/Resolving]
  - Odynophagia [Recovering/Resolving]
  - Disseminated cytomegaloviral infection [Recovered/Resolved]
  - Schistocytosis [Recovering/Resolving]
  - Disseminated intravascular coagulation [Recovering/Resolving]
